FAERS Safety Report 8873670 (Version 1)
Quarter: 2012Q4

REPORT INFORMATION
  Report Type: 
  Country: GB (occurrence: GB)
  Receive Date: 20121030
  Receipt Date: 20121030
  Transmission Date: 20130627
  Serious: Yes (Other)
  Sender: FDA-Public Use
  Company Number: PHHY2012GB093704

PATIENT
  Sex: Female

DRUGS (13)
  1. PACLITAXEL [Suspect]
     Indication: ENDOMETRIAL CANCER
     Dosage: 1 DF, QW3
     Route: 065
  2. PACLITAXEL [Suspect]
     Dosage: 1 DF, QW3
     Route: 065
  3. PACLITAXEL [Suspect]
     Dosage: 1 DF, QW3
     Route: 065
  4. PACLITAXEL [Suspect]
     Dosage: 1 DF, QW3
     Route: 065
  5. CARBOPLATIN [Suspect]
     Indication: ENDOMETRIAL CANCER
     Route: 065
  6. CARBOPLATIN [Suspect]
     Route: 065
  7. CARBOPLATIN [Suspect]
     Route: 065
  8. CARBOPLATIN [Suspect]
     Route: 065
  9. LANTUS [Suspect]
     Indication: DIABETES MELLITUS
     Dosage: 14 U, UNK
     Route: 065
  10. LANTUS [Suspect]
     Dosage: 28 U, UNK
     Route: 065
  11. LANTUS [Suspect]
     Dosage: 16 U, UNK
     Route: 065
  12. CORTICOSTEROID NOS [Suspect]
     Indication: ENDOMETRIAL CANCER
     Route: 065
  13. THERAPEUTIC RADIOPHARMACEUTICALS [Suspect]
     Indication: ENDOMETRIAL CANCER
     Route: 065

REACTIONS (2)
  - Diabetes mellitus inadequate control [Not Recovered/Not Resolved]
  - Visual impairment [Not Recovered/Not Resolved]
